FAERS Safety Report 26188162 (Version 1)
Quarter: 2025Q4

REPORT INFORMATION
  Report Type: Spontaneous
  Country: CA (occurrence: CA)
  Receive Date: 20251222
  Receipt Date: 20251222
  Transmission Date: 20260117
  Serious: Yes (Other)
  Sender: PFIZER
  Company Number: CA-PFIZER INC-202500246604

PATIENT
  Age: 77 Year
  Sex: Female
  Weight: 68 kg

DRUGS (4)
  1. BESPONSA [Suspect]
     Active Substance: INOTUZUMAB OZOGAMICIN
     Indication: Chronic myeloid leukaemia
     Dosage: 0.9 MG, SINGLE (ONCE)
     Route: 042
  2. FLUCONAZOLE [Concomitant]
     Active Substance: FLUCONAZOLE
     Dosage: UNK
  3. PANTOPRAZOLE [Concomitant]
     Active Substance: PANTOPRAZOLE
     Dosage: UNK
     Route: 042
  4. URSODIOL [Concomitant]
     Active Substance: URSODIOL
     Dosage: UNK

REACTIONS (8)
  - Inflammation [Recovered/Resolved]
  - Tachycardia [Recovered/Resolved]
  - Myocarditis [Recovered/Resolved]
  - Hypoxia [Recovered/Resolved]
  - Hypotension [Recovered/Resolved]
  - Chills [Recovered/Resolved]
  - Pyrexia [Recovered/Resolved]
  - Off label use [Unknown]
